FAERS Safety Report 5862394-X (Version None)
Quarter: 2008Q3

REPORT INFORMATION
  Report Type: 
  Country: None (occurrence: None)
  Receive Date: 20080828
  Receipt Date: 20080819
  Transmission Date: 20090109
  Serious: Yes (Death)
  Sender: FDA-Public Use
  Company Number: US-ROCHE-581658

PATIENT
  Sex: Male
  Weight: 88.5 kg

DRUGS (3)
  1. CAPECITABINE [Suspect]
     Dosage: SIX DOSE FORMS DAILY (IN MORNING AND IN EVENING)
     Route: 048
     Dates: start: 20080102
  2. AVASTIN [Concomitant]
  3. RITUXAN [Concomitant]

REACTIONS (1)
  - DEATH [None]
